FAERS Safety Report 19134919 (Version 1)
Quarter: 2021Q2

REPORT INFORMATION
  Report Type: Spontaneous
  Country: NL (occurrence: DE)
  Receive Date: 20210414
  Receipt Date: 20210414
  Transmission Date: 20210717
  Serious: Yes (Life-Threatening, Other)
  Sender: FDA-Public Use
  Company Number: DE-FRESENIUS KABI-FK202103596

PATIENT
  Sex: Male

DRUGS (20)
  1. IRINOTECAN (MANUFACTURER UNKNOWN) [Suspect]
     Active Substance: IRINOTECAN
     Indication: NEUROBLASTOMA
     Dosage: 5TH CYCLE, (LONG?TIME INFUSION)
     Route: 065
     Dates: start: 20210116
  2. TEMOZOLOMIDE. [Suspect]
     Active Substance: TEMOZOLOMIDE
     Dosage: 3RD CYCLE (LONG?TIME INFUSION)
     Route: 065
     Dates: start: 20201110
  3. METAMIZOLE [Concomitant]
     Active Substance: METAMIZOLE
     Indication: PRODUCT USED FOR UNKNOWN INDICATION
     Route: 065
  4. SULFAMETHOXAZOLE/TRIMETHOPRIM [Concomitant]
     Active Substance: SULFAMETHOXAZOLE\TRIMETHOPRIM
     Indication: ANTIFUNGAL PROPHYLAXIS
     Route: 065
  5. IRINOTECAN (MANUFACTURER UNKNOWN) [Suspect]
     Active Substance: IRINOTECAN
     Dosage: 1ST CYCLE, (SHORT?TIME INFUSION)
     Route: 065
     Dates: start: 20200930, end: 20201002
  6. DINUTUXIMAB [Suspect]
     Active Substance: DINUTUXIMAB
     Dosage: 2ND CYCLE, (LONG?TIME INFUSION) (REDUCED TO 80%)
     Route: 065
     Dates: start: 20201013
  7. DINUTUXIMAB [Suspect]
     Active Substance: DINUTUXIMAB
     Dosage: 5TH CYCLE, (LONG?TIME INFUSION)
     Route: 065
     Dates: start: 20210116
  8. DINUTUXIMAB [Suspect]
     Active Substance: DINUTUXIMAB
     Indication: NEUROBLASTOMA
     Dosage: 1ST CYCLE, (SHORT?TIME INFUSION)
     Route: 065
     Dates: start: 20200930, end: 20201002
  9. DINUTUXIMAB [Suspect]
     Active Substance: DINUTUXIMAB
     Dosage: 3RD CYCLE, (LONG?TIME INFUSION)
     Route: 065
     Dates: start: 20201110
  10. TEMOZOLOMIDE. [Suspect]
     Active Substance: TEMOZOLOMIDE
     Dosage: 4TH CYCLE, (LONG?TIME INFUSION)
     Route: 065
     Dates: start: 20201219
  11. LEVETIRACETAM. [Concomitant]
     Active Substance: LEVETIRACETAM
     Indication: SEIZURE
     Route: 065
  12. NALBUPHINE [Concomitant]
     Active Substance: NALBUPHINE
     Indication: PRODUCT USED FOR UNKNOWN INDICATION
     Route: 065
  13. FLUCONAZOLE. [Concomitant]
     Active Substance: FLUCONAZOLE
     Indication: ANTIFUNGAL PROPHYLAXIS
     Route: 065
  14. IRINOTECAN (MANUFACTURER UNKNOWN) [Suspect]
     Active Substance: IRINOTECAN
     Dosage: 2ND CYCLE, (LONG?TIME INFUSION)
     Route: 065
     Dates: start: 20201013
  15. IRINOTECAN (MANUFACTURER UNKNOWN) [Suspect]
     Active Substance: IRINOTECAN
     Dosage: 3RD CYCLE, (LONG?TIME INFUSION)
     Route: 065
     Dates: start: 20201110
  16. TEMOZOLOMIDE. [Suspect]
     Active Substance: TEMOZOLOMIDE
     Dosage: 2ND CYCLE (LONG?TIME INFUSION)
     Route: 065
     Dates: start: 20201013
  17. TEMOZOLOMIDE. [Suspect]
     Active Substance: TEMOZOLOMIDE
     Dosage: 5TH CYCLE, (LONG?TIME INFUSION)
     Route: 065
     Dates: start: 20210116
  18. IRINOTECAN (MANUFACTURER UNKNOWN) [Suspect]
     Active Substance: IRINOTECAN
     Dosage: 4TH CYCLE, (LONG?TIME INFUSION)
     Route: 065
     Dates: start: 20201219
  19. DINUTUXIMAB [Suspect]
     Active Substance: DINUTUXIMAB
     Dosage: 4TH CYCLE, (LONG?TIME INFUSION)
     Route: 065
     Dates: start: 20201219
  20. TEMOZOLOMIDE. [Suspect]
     Active Substance: TEMOZOLOMIDE
     Indication: NEUROBLASTOMA
     Dosage: 1ST CYCLE (SHORT?TIME INFUSION)
     Route: 065
     Dates: start: 20200930, end: 20201002

REACTIONS (6)
  - Therapy partial responder [Unknown]
  - Immune effector cell-associated neurotoxicity syndrome [Unknown]
  - Metastases to liver [Unknown]
  - Metastases to central nervous system [Unknown]
  - Cardiac arrest [Unknown]
  - Pyrexia [Unknown]

NARRATIVE: CASE EVENT DATE: 2020
